FAERS Safety Report 10013707 (Version 1)
Quarter: 2014Q1

REPORT INFORMATION
  Report Type: Spontaneous
  Country: TW (occurrence: TW)
  Receive Date: 20140316
  Receipt Date: 20140316
  Transmission Date: 20141002
  Serious: Yes (Life-Threatening)
  Sender: FDA-Public Use
  Company Number: TW-BAYER-2014-034704

PATIENT
  Age: 52 Year
  Sex: Female
  Weight: 69 kg

DRUGS (3)
  1. GADOVIST [Suspect]
     Indication: NUCLEAR MAGNETIC RESONANCE IMAGING BRAIN
     Dosage: 6.8 ML, UNK
     Route: 042
     Dates: start: 20140304
  2. GADOVIST [Suspect]
     Indication: NUCLEAR MAGNETIC RESONANCE IMAGING THORACIC
  3. GADOVIST [Suspect]
     Indication: LUNG CARCINOMA CELL TYPE UNSPECIFIED STAGE IV

REACTIONS (3)
  - Dyspnoea [None]
  - Cough [None]
  - Throat irritation [None]
